FAERS Safety Report 4951005-3 (Version None)
Quarter: 2006Q1

REPORT INFORMATION
  Report Type: 
  Country: None (occurrence: None)
  Receive Date: 20060315
  Receipt Date: 20060228
  Transmission Date: 20060701
  Serious: Yes (Other)
  Sender: FDA-Public Use
  Company Number: GB200601000596

PATIENT
  Age: 51 Year
  Sex: Male
  Weight: 82 kg

DRUGS (14)
  1. CIALIS [Suspect]
     Indication: ERECTILE DYSFUNCTION
     Dosage: 20 MG ORAL
     Route: 048
     Dates: start: 20050912, end: 20051221
  2. LEVITRA/GFR/ (VARDENAFIL HYDROCHLORIDE) [Concomitant]
  3. MONTELUKAST [Concomitant]
  4. DERMOVATE (CLOBETASOL PROPIONATE) CREAM 0.05% [Concomitant]
  5. DICLOFENAC SODIUM [Concomitant]
  6. PAROXETINE TABLET 20 MG [Concomitant]
  7. SENNA [Concomitant]
  8. TRAZODONE HCL [Concomitant]
  9. TRAMADOL HCL [Concomitant]
  10. ATENOLOL TABLET [Concomitant]
  11. BETAMETHASONE DIPROPIONATE OINTMENT [Concomitant]
  12. MEPTID (MEPTAZINOL HYDROCHLORIDE) [Concomitant]
  13. LORMETAZEPAM [Concomitant]
  14. LUSTRAL/IRE/(SERTRALINE HYDROCHLORIDE) [Concomitant]

REACTIONS (2)
  - MUSCLE SPASMS [None]
  - MUSCLE TWITCHING [None]
